FAERS Safety Report 7895552-3 (Version None)
Quarter: 2011Q4

REPORT INFORMATION
  Report Type: 
  Country: None (occurrence: None)
  Receive Date: 20111106
  Receipt Date: 20110829
  Transmission Date: 20120403
  Serious: No
  Sender: FDA-Public Use
  Company Number: US-AMGEN-USASP2011044132

PATIENT
  Age: 47 Year
  Sex: Female

DRUGS (6)
  1. ENBREL [Suspect]
     Indication: PRODUCT USED FOR UNKNOWN INDICATION
     Dosage: 50 MG, QWK
  2. COUMADIN [Concomitant]
     Dosage: 10 MG, UNK
  3. METHOTREXATE [Concomitant]
     Dosage: 2.5 MG, UNK
  4. LEVOTHYROXINE SODIUM [Concomitant]
     Dosage: 100 MUG, UNK
  5. FOLIC ACID [Concomitant]
     Dosage: 1 MG, UNK
  6. VITAMIN B COMP                     /00176001/ [Concomitant]

REACTIONS (1)
  - INJECTION SITE URTICARIA [None]
